FAERS Safety Report 7596101-X (Version None)
Quarter: 2011Q3

REPORT INFORMATION
  Report Type: 
  Country: None (occurrence: None)
  Receive Date: 20110707
  Receipt Date: 20110622
  Transmission Date: 20111222
  Serious: Yes (Other)
  Sender: FDA-Public Use
  Company Number: GB-WATSON-2011-10085

PATIENT
  Age: 6 Year
  Sex: Female
  Weight: 22 kg

DRUGS (5)
  1. BUPIVACAINE HCL [Suspect]
     Indication: GENERAL ANAESTHESIA
     Dosage: 3.3 ML, UNK
     Route: 065
  2. ACETAMINOPHEN [Concomitant]
     Indication: PRODUCT USED FOR UNKNOWN INDICATION
     Dosage: 330 MG, UNK
     Route: 042
  3. CLONIDINE [Concomitant]
     Indication: PRODUCT USED FOR UNKNOWN INDICATION
     Dosage: 30 MCG, UNK
     Route: 065
  4. FENTANYL [Suspect]
     Indication: GENERAL ANAESTHESIA
     Dosage: UNKNOWN
     Route: 065
  5. LEVOBUPIVACAINE [Suspect]
     Indication: GENERAL ANAESTHESIA
     Dosage: 15 ML, UNK
     Route: 065

REACTIONS (2)
  - FLUSHING [None]
  - PALLOR [None]
